FAERS Safety Report 7918930-2 (Version None)
Quarter: 2011Q4

REPORT INFORMATION
  Report Type: 
  Country: None (occurrence: None)
  Receive Date: 20111116
  Receipt Date: 20111107
  Transmission Date: 20120403
  Serious: Yes (Other)
  Sender: FDA-Public Use
  Company Number: US-ASTRAZENECA-2005UW06245

PATIENT
  Age: 80 Year
  Sex: Female
  Weight: 62.6 kg

DRUGS (7)
  1. TOPROL-XL [Suspect]
     Route: 048
  2. FOSAMAX [Concomitant]
  3. TOPROL-XL [Suspect]
     Indication: HYPERTENSION
     Route: 048
  4. CRESTOR [Suspect]
     Route: 048
     Dates: end: 20070713
  5. CRESTOR [Suspect]
     Indication: DYSLIPIDAEMIA
     Dosage: IN EVENING AND BY MORNING
     Route: 048
  6. CARDIZEM [Concomitant]
  7. TOPROL-XL [Suspect]
     Route: 048

REACTIONS (13)
  - NEOPLASM MALIGNANT [None]
  - VISUAL IMPAIRMENT [None]
  - BREAST CANCER [None]
  - COUGH [None]
  - FALL [None]
  - DYSPHAGIA [None]
  - DEAFNESS [None]
  - SKIN CANCER [None]
  - APHAGIA [None]
  - MALAISE [None]
  - INFLUENZA [None]
  - ROAD TRAFFIC ACCIDENT [None]
  - BLOOD PRESSURE FLUCTUATION [None]
